FAERS Safety Report 9419210 (Version 5)
Quarter: 2016Q2

REPORT INFORMATION
  Report Type: Report from Study
  Country: CA (occurrence: CA)
  Receive Date: 20130725
  Receipt Date: 20160420
  Transmission Date: 20160815
  Serious: Yes (Hospitalization, Other)
  Sender: FDA-Public Use
  Company Number: CA-JNJFOC-20130712794

PATIENT
  Age: 38 Year
  Sex: Female
  Weight: 53 kg

DRUGS (5)
  1. PREVACID [Concomitant]
     Active Substance: LANSOPRAZOLE
     Route: 048
  2. REMICADE [Suspect]
     Active Substance: INFLIXIMAB
     Indication: CROHN^S DISEASE
     Route: 042
  3. REMICADE [Suspect]
     Active Substance: INFLIXIMAB
     Indication: CROHN^S DISEASE
     Route: 042
     Dates: start: 20130410
  4. REMICADE [Suspect]
     Active Substance: INFLIXIMAB
     Indication: CROHN^S DISEASE
     Route: 042
     Dates: end: 20140506
  5. CELEXA [Concomitant]
     Active Substance: CITALOPRAM HYDROBROMIDE
     Route: 048

REACTIONS (5)
  - Ileostomy [Unknown]
  - Anal abscess [Recovering/Resolving]
  - Drug ineffective [Unknown]
  - Anal pruritus [Recovered/Resolved]
  - Infusion related reaction [Recovered/Resolved]

NARRATIVE: CASE EVENT DATE: 20130712
